FAERS Safety Report 8989660 (Version 1)
Quarter: 2012Q4

REPORT INFORMATION
  Report Type: 
  Country: US (occurrence: US)
  Receive Date: 20121228
  Receipt Date: 20121228
  Transmission Date: 20130627
  Serious: Yes (Hospitalization)
  Sender: FDA-Public Use
  Company Number: US-ACCORD-015706

PATIENT
  Age: 73 Year
  Sex: Male

DRUGS (8)
  1. PREDNISONE [Concomitant]
  2. LABETALOL [Concomitant]
  3. AMLODIPINE [Concomitant]
  4. SIMVASTATIN [Suspect]
     Indication: DRUG USE FOR UNKNOWN INDICATION
  5. ALLOPURINOL [Concomitant]
  6. INSULIN GLARGINE [Concomitant]
  7. AZITHROMYCIN [Interacting]
     Indication: ACUTE BRONCHITIS
     Dosage: 500 mg on the first day followed by 250 mg daily for the next 4 days
     Route: 048
  8. BUMETANIDE [Concomitant]

REACTIONS (3)
  - Drug interaction [Recovered/Resolved]
  - Rhabdomyolysis [Recovered/Resolved]
  - Renal failure acute [Recovered/Resolved]
